FAERS Safety Report 18639176 (Version 3)
Quarter: 2021Q1

REPORT INFORMATION
  Report Type: Spontaneous
  Country: US (occurrence: US)
  Receive Date: 20201219
  Receipt Date: 20210210
  Transmission Date: 20210419
  Serious: No
  Sender: FDA-Public Use
  Company Number: US-009507513-2012USA001175

PATIENT
  Sex: Female

DRUGS (1)
  1. NEXPLANON [Suspect]
     Active Substance: ETONOGESTREL
     Dosage: 68 MG, LEFT UPPER ARM
     Route: 059
     Dates: start: 2019

REACTIONS (6)
  - Complication associated with device [Recovered/Resolved]
  - Device issue [Not Recovered/Not Resolved]
  - Abdominal pain [Unknown]
  - Complication of device removal [Not Recovered/Not Resolved]
  - Menstruation irregular [Unknown]
  - Nausea [Unknown]

NARRATIVE: CASE EVENT DATE: 2020
